FAERS Safety Report 7910517-0 (Version None)
Quarter: 2011Q4

REPORT INFORMATION
  Report Type: 
  Country: None (occurrence: None)
  Receive Date: 20111111
  Receipt Date: 20111028
  Transmission Date: 20120403
  Serious: Yes (Other)
  Sender: FDA-Public Use
  Company Number: PHHY2011JP92874

PATIENT
  Age: 48 Year
  Sex: Male

DRUGS (5)
  1. CYCLOSPORINE [Suspect]
     Indication: RENAL TRANSPLANT
     Dosage: UNK UKN, UNK
  2. PREDNISOLONE [Concomitant]
     Indication: RENAL TRANSPLANT
     Dosage: UNK UKN, UNK
  3. PREDNISOLONE [Concomitant]
     Dosage: 40 MG, UNK
  4. MYCOPHENOLATE MOFETIL [Concomitant]
     Indication: RENAL TRANSPLANT
     Dosage: UNK UKN, UNK
     Route: 048
  5. BASILIXIMAB [Suspect]
     Indication: RENAL TRANSPLANT
     Dosage: UNK UKN, UNK
     Route: 048

REACTIONS (16)
  - KIDNEY TRANSPLANT REJECTION [None]
  - RASH [None]
  - OCULAR HYPERAEMIA [None]
  - CARDIAC FAILURE [None]
  - FACIAL PAIN [None]
  - VISUAL ACUITY REDUCED [None]
  - RETINAL DETACHMENT [None]
  - DERMATITIS BULLOUS [None]
  - PAIN [None]
  - HERPES ZOSTER [None]
  - SCAB [None]
  - NECROTISING HERPETIC RETINOPATHY [None]
  - PRURITUS [None]
  - URINARY RETENTION [None]
  - ATRIAL FIBRILLATION [None]
  - BLISTER [None]
